FAERS Safety Report 16172704 (Version 1)
Quarter: 2019Q2

REPORT INFORMATION
  Report Type: Spontaneous
  Country: US (occurrence: US)
  Receive Date: 20190409
  Receipt Date: 20190409
  Transmission Date: 20190711
  Serious: No
  Sender: FDA-Public Use
  Company Number: US-GLAXOSMITHKLINE-US2019058857

PATIENT
  Age: 36 Year
  Sex: Male

DRUGS (1)
  1. ALLI [Suspect]
     Active Substance: ORLISTAT
     Indication: WEIGHT CONTROL
     Dosage: UNK
     Dates: start: 2016

REACTIONS (9)
  - Pain [Unknown]
  - Drug ineffective [Unknown]
  - Weight increased [Unknown]
  - Flatulence [Unknown]
  - Product complaint [Unknown]
  - Bowel movement irregularity [Unknown]
  - Steatorrhoea [Unknown]
  - Suspected counterfeit product [Unknown]
  - Skin erosion [Unknown]

NARRATIVE: CASE EVENT DATE: 2018
